FAERS Safety Report 8224372-5 (Version None)
Quarter: 2012Q1

REPORT INFORMATION
  Report Type: 
  Country: None (occurrence: None)
  Receive Date: 20120321
  Receipt Date: 20120316
  Transmission Date: 20120608
  Serious: Yes (Hospitalization, Other)
  Sender: FDA-Public Use
  Company Number: US-PFIZER INC-2011311504

PATIENT
  Sex: Female

DRUGS (3)
  1. LEXAPRO [Concomitant]
     Indication: ANXIETY
     Dosage: UNK
     Dates: start: 20070101, end: 20100101
  2. WELLBUTRIN [Concomitant]
     Indication: DEPRESSION
     Dosage: UNK
     Dates: start: 20060101
  3. CHANTIX [Suspect]
     Indication: SMOKING CESSATION THERAPY
     Dosage: UNK
     Dates: start: 20071001, end: 20090101

REACTIONS (5)
  - INTENTIONAL OVERDOSE [None]
  - MENTAL DISORDER [None]
  - EMOTIONAL DISTRESS [None]
  - SUICIDE ATTEMPT [None]
  - DEPRESSION [None]
